FAERS Safety Report 6442925-1 (Version None)
Quarter: 2009Q4

REPORT INFORMATION
  Report Type: 
  Country: None (occurrence: None)
  Receive Date: 20091113
  Receipt Date: 20091029
  Transmission Date: 20100525
  Serious: Yes (Hospitalization)
  Sender: FDA-Public Use
  Company Number: 2009BM000284

PATIENT
  Age: 10 Year
  Sex: Male
  Weight: 39.9165 kg

DRUGS (1)
  1. KUVAN [Suspect]
     Indication: PHENYLKETONURIA
     Dosage: 900 MG, QD, PO
     Route: 048

REACTIONS (1)
  - H1N1 INFLUENZA [None]
